FAERS Safety Report 10177646 (Version 2)
Quarter: 2014Q2

REPORT INFORMATION
  Report Type: Spontaneous
  Country: SE (occurrence: SE)
  Receive Date: 20140516
  Receipt Date: 20140522
  Transmission Date: 20141212
  Serious: Yes (Hospitalization)
  Sender: FDA-Public Use
  Company Number: SE-PFIZER INC-2014132376

PATIENT
  Age: 68 Year
  Sex: Male

DRUGS (8)
  1. ATORVASTATIN CALCIUM [Suspect]
     Indication: BLOOD CHOLESTEROL INCREASED
     Dosage: 10 MG, UNK
     Dates: start: 20140211, end: 20140308
  2. BACLOFEN [Suspect]
     Indication: CONVULSION
     Dosage: 5 MG, 4X/DAY
     Dates: start: 2012
  3. BACLOFEN BLUEFISH [Suspect]
     Indication: CONVULSION
     Dosage: 10 MG, 4X/DAY
     Dates: start: 20140211
  4. LYRICA [Concomitant]
     Indication: NEURALGIA
     Dosage: UNK
  5. METFORMIN [Concomitant]
     Indication: BLOOD GLUCOSE INCREASED
     Dosage: UNK
  6. ENAPRIL [Concomitant]
     Indication: HYPERTENSION
     Dosage: UNK
  7. IBUMETIN [Concomitant]
     Indication: INFLAMMATION
     Dosage: UNK
  8. ORUDIS [Concomitant]
     Indication: ARTHROPATHY
     Dosage: UNK

REACTIONS (5)
  - Muscle tightness [Not Recovered/Not Resolved]
  - Muscle spasms [Not Recovered/Not Resolved]
  - Muscle rigidity [Unknown]
  - Coordination abnormal [Unknown]
  - Musculoskeletal pain [Unknown]
